FAERS Safety Report 11512336 (Version 1)
Quarter: 2015Q3

REPORT INFORMATION
  Report Type: Spontaneous
  Country: US (occurrence: US)
  Receive Date: 20150916
  Receipt Date: 20150916
  Transmission Date: 20151125
  Serious: No
  Sender: FDA-Public Use
  Company Number: US-GLENMARK PHARMACEUTICALS INC, USA.-2014GMK011028

PATIENT
  Age: 53 Year
  Sex: Female

DRUGS (2)
  1. NORETHINDRONE ACETATE TABLETS [Suspect]
     Active Substance: NORETHINDRONE ACETATE
     Dosage: UNK
     Dates: start: 20140805, end: 20140805
  2. LUPRON DEPOT-PED [Suspect]
     Active Substance: LEUPROLIDE ACETATE
     Dosage: 3.75 MG, EVERY MONTH
     Dates: start: 20140805, end: 20140805

REACTIONS (3)
  - Vision blurred [Unknown]
  - Product use issue [Unknown]
  - Depression [Unknown]

NARRATIVE: CASE EVENT DATE: 20140805
